FAERS Safety Report 7263771-5 (Version None)
Quarter: 2011Q1

REPORT INFORMATION
  Report Type: 
  Country: None (occurrence: None)
  Receive Date: 20110130
  Receipt Date: 20101104
  Transmission Date: 20110831
  Serious: No
  Sender: FDA-Public Use
  Company Number: US-ABBOTT-10P-163-0684206-00

PATIENT
  Sex: Female
  Weight: 83.99 kg

DRUGS (3)
  1. ROBAXIN [Concomitant]
     Indication: MUSCLE SPASMS
     Dosage: TWICE DAILY, AS NEEDED
     Route: 048
  2. CLARITIN [Concomitant]
     Indication: HYPERSENSITIVITY
     Route: 048
  3. HUMIRA [Suspect]
     Indication: PSORIASIS
     Route: 058
     Dates: start: 20090901, end: 20101001

REACTIONS (1)
  - ARTHRALGIA [None]
